FAERS Safety Report 6354409-X (Version None)
Quarter: 2009Q3

REPORT INFORMATION
  Report Type: 
  Country: None (occurrence: None)
  Receive Date: 20090914
  Receipt Date: 20090902
  Transmission Date: 20100115
  Serious: Yes (Hospitalization)
  Sender: FDA-Public Use
  Company Number: US-BIOGENIDEC-2009BI027927

PATIENT
  Age: 52 Year
  Sex: Female
  Weight: 58 kg

DRUGS (3)
  1. AVONEX [Suspect]
     Indication: MULTIPLE SCLEROSIS
     Route: 030
     Dates: start: 19981001, end: 20030101
  2. AVONEX [Suspect]
     Route: 030
     Dates: start: 20030101, end: 20090301
  3. AVONEX [Suspect]
     Route: 030
     Dates: start: 20090801

REACTIONS (6)
  - INTESTINAL OBSTRUCTION [None]
  - LETHARGY [None]
  - MALAISE [None]
  - PAIN [None]
  - VOMITING [None]
  - WOUND [None]
